FAERS Safety Report 10358465 (Version 1)
Quarter: 2014Q3

REPORT INFORMATION
  Report Type: Spontaneous
  Country: US (occurrence: US)
  Receive Date: 20140801
  Receipt Date: 20140801
  Transmission Date: 20150326
  Serious: No
  Sender: FDA-Public Use
  Company Number: US-009507513-1407USA014308

PATIENT
  Sex: Female

DRUGS (2)
  1. PROAIR HFA [Concomitant]
     Active Substance: ALBUTEROL SULFATE
  2. PROVENTIL [Suspect]
     Active Substance: ALBUTEROL
     Indication: CHRONIC OBSTRUCTIVE PULMONARY DISEASE
     Dosage: ^2 PUFF EVERY 4-6 HOURS, AS NEEDED^.HOWEVER, THE PHYSICAN WROTE THE SCRIPT OUT AS ^3 PUFFS EVERY 4H^
     Route: 055
     Dates: start: 2009

REACTIONS (7)
  - Dyspnoea [Unknown]
  - Drug dose omission [Unknown]
  - Heart rate increased [Unknown]
  - Product quality issue [Unknown]
  - Oral pain [Unknown]
  - Drug prescribing error [Unknown]
  - Mouth swelling [Unknown]
